FAERS Safety Report 6642679-X (Version None)
Quarter: 2010Q1

REPORT INFORMATION
  Report Type: 
  Country: None (occurrence: None)
  Receive Date: 20100319
  Receipt Date: 20100310
  Transmission Date: 20100710
  Serious: Yes (Hospitalization, Other)
  Sender: FDA-Public Use
  Company Number: US-JNJFOC-20100303889

PATIENT
  Sex: Male
  Weight: 83.92 kg

DRUGS (5)
  1. REMICADE [Suspect]
     Indication: CROHN'S DISEASE
     Route: 042
  2. SIMVASTATIN [Concomitant]
     Indication: BLOOD CHOLESTEROL
  3. AMLODIPINE [Concomitant]
     Indication: HYPERTENSION
     Dosage: DURATION: 8 MONTHS
  4. RANITIDINE [Concomitant]
     Indication: GASTROOESOPHAGEAL REFLUX DISEASE
     Dosage: DURATION: 6 MONTHS
  5. ASPIRIN [Concomitant]
     Indication: ANTICOAGULANT THERAPY
     Dosage: DURATION: 8 MONTHS

REACTIONS (3)
  - ABDOMINAL PAIN [None]
  - CEREBROVASCULAR ACCIDENT [None]
  - WEIGHT DECREASED [None]
